FAERS Safety Report 4381207-9 (Version None)
Quarter: 2004Q2

REPORT INFORMATION
  Report Type: 
  Country: None (occurrence: None)
  Receive Date: 20040617
  Receipt Date: 20040617
  Transmission Date: 20050107
  Serious: Yes (Hospitalization)
  Sender: FDA-Public Use
  Company Number: None

PATIENT
  Age: 74 Year
  Sex: Male
  Weight: 97.8 kg

DRUGS (9)
  1. EPTIFIBATIDE (NTEGRILIN(R)) [Suspect]
     Indication: ANTIPLATELET THERAPY
     Dosage: 2(9 ML BOLUSES), 16 ML/HR/IV
     Route: 042
     Dates: start: 20040614, end: 20040615
  2. HEPARIN [Suspect]
     Dosage: 4.865 UNITS IV
     Route: 042
     Dates: start: 20040614
  3. MIDAZOLAM HCL [Concomitant]
  4. FENTANYL [Concomitant]
  5. NITROGLYCERIN [Concomitant]
  6. CEFAZOLIN [Concomitant]
  7. CLOPIDOGREL BISULFATE [Concomitant]
  8. ASPIRIN [Concomitant]
  9. PEPCID [Concomitant]

REACTIONS (1)
  - POST PROCEDURAL HAEMORRHAGE [None]
